FAERS Safety Report 8044540-5 (Version None)
Quarter: 2012Q1

REPORT INFORMATION
  Report Type: 
  Country: None (occurrence: None)
  Receive Date: 20120111
  Receipt Date: 20120111
  Transmission Date: 20120608
  Serious: No
  Sender: FDA-Public Use
  Company Number: None

PATIENT
  Age: 68 Year
  Sex: Male
  Weight: 87.0906 kg

DRUGS (2)
  1. LIVALO [Suspect]
     Indication: BLOOD CHOLESTEROL ABNORMAL
     Dosage: 1 TABLET DAILY
     Dates: start: 20111014, end: 20111208
  2. LIVALO [Suspect]
     Indication: BLOOD CHOLESTEROL ABNORMAL
     Dosage: 1 TABLET DAILY
     Dates: start: 20110902, end: 20111014

REACTIONS (12)
  - PERIPHERAL COLDNESS [None]
  - OEDEMA PERIPHERAL [None]
  - JOINT SWELLING [None]
  - CHILLS [None]
  - GAIT DISTURBANCE [None]
  - BACK PAIN [None]
  - MUSCULAR WEAKNESS [None]
  - PYREXIA [None]
  - MYALGIA [None]
  - MUSCLE INJURY [None]
  - HEADACHE [None]
  - ARTHRALGIA [None]
